FAERS Safety Report 9780973 (Version 1)
Quarter: 2013Q4

REPORT INFORMATION
  Report Type: Spontaneous
  Country: US (occurrence: US)
  Receive Date: 20131224
  Receipt Date: 20131224
  Transmission Date: 20140711
  Serious: Yes (Other)
  Sender: FDA-Public Use
  Company Number: US-JNJFOC-20131213293

PATIENT
  Sex: Male

DRUGS (3)
  1. INVOKANA [Suspect]
     Indication: DIABETES MELLITUS
     Route: 048
  2. INVOKANA [Suspect]
     Indication: DIABETES MELLITUS
     Route: 048
  3. METFORMIN [Concomitant]
     Indication: DIABETES MELLITUS

REACTIONS (1)
  - Back pain [Unknown]
